FAERS Safety Report 10269651 (Version 2)
Quarter: 2014Q2

REPORT INFORMATION
  Report Type: Spontaneous
  Country: US (occurrence: None)
  Receive Date: 20140612
  Receipt Date: 20140612
  Transmission Date: 20141212
  Serious: Yes (Disabling, Other)
  Sender: FDA-Public Use
  Company Number: 003-181

PATIENT
  Age: 44 Year
  Sex: Male

DRUGS (1)
  1. CROFAB [Suspect]
     Indication: SNAKE BITE
     Dosage: 6 VIALS TOTAL
     Dates: start: 20140517, end: 20140517

REACTIONS (1)
  - Cerebrovascular accident [None]
